FAERS Safety Report 9666016 (Version 2)
Quarter: 2013Q4

REPORT INFORMATION
  Report Type: Spontaneous
  Country: US (occurrence: US)
  Receive Date: 20131103
  Receipt Date: 20131129
  Transmission Date: 20140711
  Serious: Yes (Death)
  Sender: FDA-Public Use
  Company Number: US-JNJFOC-20131017578

PATIENT
  Age: 77 Year
  Sex: Male

DRUGS (2)
  1. SUDAFED CONGESTION 30 MG TABLET [Suspect]
     Route: 048
  2. SUDAFED CONGESTION 30 MG TABLET [Suspect]
     Indication: PRODUCT USED FOR UNKNOWN INDICATION
     Route: 048
     Dates: start: 1990, end: 2010

REACTIONS (2)
  - Malignant melanoma [Fatal]
  - Metastatic malignant melanoma [Fatal]
